FAERS Safety Report 16899626 (Version 1)
Quarter: 2019Q4

REPORT INFORMATION
  Report Type: Report from Study
  Country: ES (occurrence: ES)
  Receive Date: 20191009
  Receipt Date: 20191009
  Transmission Date: 20200122
  Serious: Yes (Hospitalization)
  Sender: FDA-Public Use
  Company Number: ES-ROCHE-2422288

PATIENT
  Age: 45 Year
  Sex: Female

DRUGS (6)
  1. LORMETAZEPAM [Suspect]
     Active Substance: LORMETAZEPAM
     Indication: DEPRESSION
     Route: 048
     Dates: start: 201812
  2. RIZATRIPTAN. [Concomitant]
     Active Substance: RIZATRIPTAN
     Indication: DEPRESSION
     Route: 048
     Dates: start: 201206, end: 20190410
  3. CLONAZEPAM. [Suspect]
     Active Substance: CLONAZEPAM
     Route: 048
     Dates: start: 201807
  4. CLONAZEPAM. [Suspect]
     Active Substance: CLONAZEPAM
     Indication: DEPRESSION
     Route: 048
     Dates: start: 20190411, end: 20190411
  5. LORMETAZEPAM [Suspect]
     Active Substance: LORMETAZEPAM
     Route: 048
     Dates: start: 20190411, end: 20190411
  6. ESCITALOPRAM [Concomitant]
     Active Substance: ESCITALOPRAM OXALATE
     Indication: DEPRESSION
     Route: 048
     Dates: start: 201210, end: 20190410

REACTIONS (3)
  - Suicide attempt [Unknown]
  - Mental status changes [Recovered/Resolved]
  - Intentional overdose [Unknown]

NARRATIVE: CASE EVENT DATE: 20190411
